FAERS Safety Report 10089976 (Version 1)
Quarter: 2014Q2

REPORT INFORMATION
  Report Type: Spontaneous
  Country: US (occurrence: CA)
  Receive Date: 20140421
  Receipt Date: 20140421
  Transmission Date: 20141212
  Serious: Yes (Other)
  Sender: FDA-Public Use
  Company Number: CA-TEVA-476253USA

PATIENT
  Sex: Female

DRUGS (5)
  1. RATIO-OXYCOCET [Suspect]
     Route: 048
  2. ALCOHOL [Suspect]
  3. TRAZODONE [Concomitant]
     Dosage: AT NIGHT
  4. CLONAZEPAM [Concomitant]
     Dosage: 4 MILLIGRAM DAILY; ONCE IN THE MORNING AND ONCE AT BEDTIME
     Route: 048
  5. PAXIL [Concomitant]
     Dosage: 40 MILLIGRAM DAILY; DURING THE DAY IN THE MORNING
     Route: 048

REACTIONS (1)
  - Road traffic accident [Unknown]
